FAERS Safety Report 9078596 (Version 2)
Quarter: 2013Q3

REPORT INFORMATION
  Report Type: Report from Study
  Country: DE (occurrence: DE)
  Receive Date: 20130215
  Receipt Date: 20130725
  Transmission Date: 20140515
  Serious: Yes (Other)
  Sender: FDA-Public Use
  Company Number: DE-CELGENEUS-062-21880-13020477

PATIENT
  Age: 45 Year
  Sex: Female
  Weight: 80 kg

DRUGS (5)
  1. REVLIMID [Suspect]
     Indication: PLASMA CELL MYELOMA
     Route: 048
     Dates: start: 20120619
  2. REVLIMID [Suspect]
     Dosage: 10 MILLIGRAM
     Route: 048
     Dates: start: 20121115
  3. ZOMETA [Concomitant]
     Indication: BONE DISORDER
     Route: 041
     Dates: start: 201206
  4. ECURAL [Concomitant]
     Indication: RASH
     Route: 065
     Dates: start: 20121210
  5. DESOGESTREL [Concomitant]
     Indication: CONTRACEPTION
     Route: 048
     Dates: start: 201207, end: 201212

REACTIONS (1)
  - Facial paresis [Recovered/Resolved]
